FAERS Safety Report 25802420 (Version 1)
Quarter: 2025Q3

REPORT INFORMATION
  Report Type: Spontaneous
  Country: US (occurrence: US)
  Receive Date: 20250915
  Receipt Date: 20250915
  Transmission Date: 20251021
  Serious: No
  Sender: MYLAN
  Company Number: US-MYLANLABS-2025M1076791

PATIENT
  Sex: Female
  Weight: 69.94 kg

DRUGS (2)
  1. LYRICA [Suspect]
     Active Substance: PREGABALIN
     Indication: Product used for unknown indication
  2. GABAPENTIN [Suspect]
     Active Substance: GABAPENTIN
     Indication: Product used for unknown indication

REACTIONS (5)
  - Drug intolerance [Unknown]
  - Cerebral disorder [Unknown]
  - Spinal pain [Unknown]
  - Drug hypersensitivity [Unknown]
  - Neck pain [Unknown]
